FAERS Safety Report 9146909 (Version 1)
Quarter: 2013Q1

REPORT INFORMATION
  Report Type: Spontaneous
  Country: DK (occurrence: None)
  Receive Date: 20130204
  Receipt Date: 20130204
  Transmission Date: 20140127
  Serious: Yes (Death)
  Sender: FDA-Public Use
  Company Number: 2013MA000772

PATIENT
  Sex: 0

DRUGS (4)
  1. PROPRANOLOL HCL [Suspect]
     Route: 064
  2. AMITRIPTYLINE (AMITRIPTYLINE) [Suspect]
     Route: 064
  3. VENLAFAXINE [Suspect]
     Route: 064
  4. ZOPICLONE [Suspect]
     Route: 064

REACTIONS (2)
  - Foetal death [None]
  - Maternal drugs affecting foetus [None]
